FAERS Safety Report 5733086-2 (Version None)
Quarter: 2008Q2

REPORT INFORMATION
  Report Type: 
  Country: None (occurrence: None)
  Receive Date: 20080509
  Receipt Date: 20080428
  Transmission Date: 20081010
  Serious: Yes (Hospitalization)
  Sender: FDA-Public Use
  Company Number: JP-NOVOPROD-274751

PATIENT
  Age: 76 Year
  Sex: Male
  Weight: 67 kg

DRUGS (7)
  1. NOVORAPID CHU [Suspect]
     Indication: TYPE 1 DIABETES MELLITUS
     Dosage: 18 IU, QD
     Route: 058
     Dates: start: 20050201, end: 20060801
  2. NOVORAPID CHU [Suspect]
     Dosage: 4 IU, QD
     Route: 058
     Dates: end: 20070401
  3. NOVOLIN N [Suspect]
     Indication: TYPE 1 DIABETES MELLITUS
     Dosage: 12 IU, QD
     Route: 058
     Dates: start: 20070101
  4. NOVOLIN N [Suspect]
     Dosage: 4 IU, QD
     Route: 058
     Dates: start: 20050201, end: 20060801
  5. NOVOLIN R [Suspect]
     Indication: TYPE 1 DIABETES MELLITUS
     Dosage: 12 IU, QD
     Dates: start: 20070101, end: 20070401
  6. HUMALOG [Concomitant]
     Dosage: 4 IU, UNK
  7. BASEN [Concomitant]
     Dosage: .9 MG, QD
     Route: 048
     Dates: start: 20070401

REACTIONS (2)
  - ANTI-INSULIN ANTIBODY [None]
  - BLOOD GLUCOSE FLUCTUATION [None]
